FAERS Safety Report 14496323 (Version 1)
Quarter: 2018Q1

REPORT INFORMATION
  Report Type: Spontaneous
  Country: FR (occurrence: FR)
  Receive Date: 20180207
  Receipt Date: 20180207
  Transmission Date: 20180509
  Serious: Yes (Other)
  Sender: FDA-Public Use
  Company Number: FR-MERCK KGAA-2041524

PATIENT
  Sex: Female
  Weight: 78 kg

DRUGS (4)
  1. INEXIUM [Concomitant]
     Active Substance: ESOMEPRAZOLE
  2. NOVOTHYROX [Suspect]
     Active Substance: LEVOTHYROXINE SODIUM
     Indication: SECONDARY HYPOTHYROIDISM
     Route: 048
     Dates: start: 201704, end: 20180101
  3. HYDROCORTISONE. [Concomitant]
     Active Substance: HYDROCORTISONE
  4. CYMBALTA [Concomitant]
     Active Substance: DULOXETINE HYDROCHLORIDE

REACTIONS (6)
  - Asthenia [Recovered/Resolved]
  - Arthralgia [Recovered/Resolved]
  - Headache [Recovered/Resolved]
  - Vertigo [Recovered/Resolved]
  - Weight increased [Recovered/Resolved]
  - Blood thyroid stimulating hormone normal [Recovered/Resolved]

NARRATIVE: CASE EVENT DATE: 20170515
